FAERS Safety Report 5582506-5 (Version None)
Quarter: 2007Q4

REPORT INFORMATION
  Report Type: 
  Country: None (occurrence: None)
  Receive Date: 20071130
  Receipt Date: 20070413
  Transmission Date: 20080405
  Serious: Yes (Other)
  Sender: FDA-Public Use
  Company Number: WAES 0704USA02617

PATIENT
  Sex: Female

DRUGS (12)
  1. FOSAMAX [Suspect]
     Indication: OSTEOPENIA
     Dosage: 70 MG/WKY/PO
     Route: 048
  2. ADVAIR DISKUS 100/50 [Concomitant]
  3. ALAVERT [Concomitant]
  4. NORVASC [Concomitant]
  5. ALBUTEROL [Concomitant]
  6. ATENOLOL [Concomitant]
  7. CALCIUM + VITAMN [Concomitant]
  8. GLIPIZIDE [Concomitant]
  9. INSULIN [Concomitant]
  10. LISINOPRIL [Concomitant]
  11. METORMIN [Concomitant]
  12. PREDNISONE TAB [Concomitant]

REACTIONS (1)
  - OSTEONECROSIS [None]
